FAERS Safety Report 7970788-1 (Version None)
Quarter: 2011Q4

REPORT INFORMATION
  Report Type: 
  Country: None (occurrence: None)
  Receive Date: 20111212
  Receipt Date: 20111205
  Transmission Date: 20120403
  Serious: Yes (Other)
  Sender: FDA-Public Use
  Company Number: PHHY2011BE105545

PATIENT
  Sex: Female
  Weight: 45 kg

DRUGS (3)
  1. VITAMIN D [Concomitant]
     Dosage: UNK UKN, UNK
  2. ZOLEDRONOC ACID [Suspect]
     Indication: OSTEOPOROSIS
     Dosage: 5 MG, UNK
     Route: 042
  3. CALCIUM [Concomitant]
     Dosage: UNK UKN, UNK

REACTIONS (6)
  - PSYCHOMOTOR SKILLS IMPAIRED [None]
  - FATIGUE [None]
  - ASTHENIA [None]
  - SENSORY DISTURBANCE [None]
  - MUSCULAR WEAKNESS [None]
  - PAIN [None]
